FAERS Safety Report 15748407 (Version 1)
Quarter: 2018Q4

REPORT INFORMATION
  Report Type: Spontaneous
  Country: JP (occurrence: JP)
  Receive Date: 20181221
  Receipt Date: 20181221
  Transmission Date: 20190205
  Serious: Yes (Hospitalization, Other)
  Sender: FDA-Public Use
  Company Number: JP-GLAXOSMITHKLINE-JP2018JPN227935

PATIENT
  Age: 36 Year
  Sex: Male

DRUGS (1)
  1. SAMTIREL [Suspect]
     Active Substance: ATOVAQUONE
     Indication: PNEUMOCYSTIS JIROVECII PNEUMONIA
     Dosage: UNK
     Route: 048

REACTIONS (4)
  - Pyrexia [Unknown]
  - Abdominal distension [Unknown]
  - Mycobacterial infection [Unknown]
  - Immune reconstitution inflammatory syndrome [Unknown]
